FAERS Safety Report 14836929 (Version 1)
Quarter: 2018Q2

REPORT INFORMATION
  Report Type: Spontaneous
  Country: FR (occurrence: FR)
  Receive Date: 20180502
  Receipt Date: 20180502
  Transmission Date: 20180711
  Serious: Yes (Other)
  Sender: FDA-Public Use
  Company Number: FR-MERCK KGAA-2046985

PATIENT
  Age: 50 Year
  Sex: Female

DRUGS (1)
  1. NOVOTHYROX [Suspect]
     Active Substance: LEVOTHYROXINE SODIUM
     Indication: POST PROCEDURAL HYPOTHYROIDISM

REACTIONS (44)
  - Mood swings [None]
  - Impatience [None]
  - Feeling guilty [None]
  - N-terminal prohormone brain natriuretic peptide increased [None]
  - Disturbance in attention [None]
  - Anxiety [None]
  - Psychiatric symptom [None]
  - Muscle fatigue [None]
  - Musculoskeletal stiffness [None]
  - Blood thyroid stimulating hormone decreased [None]
  - Tachycardia [None]
  - Back pain [None]
  - Amnesia [None]
  - Hypertension [None]
  - Dyspnoea [None]
  - Crying [None]
  - Aggression [None]
  - Fatigue [None]
  - Irritability [None]
  - Malaise [None]
  - Mental fatigue [None]
  - Hot flush [None]
  - Insomnia [None]
  - Major depression [None]
  - Dizziness [None]
  - Asthma [None]
  - Impaired work ability [None]
  - Protein total decreased [None]
  - Weight increased [None]
  - Loss of personal independence in daily activities [None]
  - Emotional disorder [None]
  - Aphasia [None]
  - Feeling of despair [None]
  - Neck pain [None]
  - Pain in extremity [None]
  - Feeling abnormal [None]
  - Pain [None]
  - Decreased activity [None]
  - Suicidal ideation [None]
  - Arthralgia [None]
  - Migraine [None]
  - Gait disturbance [None]
  - Communication disorder [None]
  - Social avoidant behaviour [None]

NARRATIVE: CASE EVENT DATE: 201709
